FAERS Safety Report 18623597 (Version 1)
Quarter: 2020Q4

REPORT INFORMATION
  Report Type: Spontaneous
  Country: US (occurrence: US)
  Receive Date: 20201216
  Receipt Date: 20201216
  Transmission Date: 20210114
  Serious: No
  Sender: FDA-Public Use
  Company Number: US-PFIZER INC-2020495039

PATIENT
  Age: 82 Year
  Sex: Female
  Weight: 65.32 kg

DRUGS (1)
  1. IBRANCE [Suspect]
     Active Substance: PALBOCICLIB
     Indication: BREAST CANCER METASTATIC
     Dosage: 125 MG, CYCLIC (125MG TABLET FOR 21 DAYS THEN OFF 7 DAYS)
     Dates: start: 2020

REACTIONS (1)
  - Musculoskeletal disorder [Unknown]
